FAERS Safety Report 10542758 (Version 2)
Quarter: 2014Q4

REPORT INFORMATION
  Report Type: Spontaneous
  Country: US (occurrence: None)
  Receive Date: 20141010
  Receipt Date: 20141205
  Transmission Date: 20150529
  Serious: Yes (Other)
  Sender: FDA-Public Use
  Company Number: 163-POMAL-14074142

PATIENT
  Age: 75 Year
  Sex: Female
  Weight: 108.86 kg

DRUGS (14)
  1. VITAMIN D (ERGOCALCIFEROL) [Concomitant]
     Active Substance: ERGOCALCIFEROL
  2. CIPRO [Concomitant]
     Active Substance: CIPROFLOXACIN HYDROCHLORIDE
  3. VITAMIN B12 (CYANOCOBALMIN) [Concomitant]
  4. CENTRUM SPECIALIST VISION [Concomitant]
  5. LANOXIN [Concomitant]
     Active Substance: DIGOXIN
  6. LOPRESSOR [Concomitant]
     Active Substance: METOPROLOL TARTRATE
  7. TYLENOL [Concomitant]
     Active Substance: ACETAMINOPHEN
  8. PRESERVISION (OCUVITE LUTEIN) [Concomitant]
  9. D2000 (LEKOVIT CA) [Concomitant]
  10. POMALYST [Suspect]
     Active Substance: POMALIDOMIDE
     Indication: PLASMA CELL MYELOMA
     Dosage: 4 MG, 21 IN 21 D, PO
     Route: 048
     Dates: start: 20140520
  11. DEXAMETHASONE. [Concomitant]
     Active Substance: DEXAMETHASONE
  12. NEURONTIN [Concomitant]
     Active Substance: GABAPENTIN
  13. LASIX [Concomitant]
     Active Substance: FUROSEMIDE
  14. COUMADIN [Concomitant]
     Active Substance: WARFARIN SODIUM

REACTIONS (10)
  - Red blood cell count decreased [None]
  - Platelet count decreased [None]
  - Fatigue [None]
  - Hair texture abnormal [None]
  - Fungal infection [None]
  - Cystitis [None]
  - Full blood count decreased [None]
  - Haemoglobin decreased [None]
  - Dyspnoea [None]
  - Diarrhoea [None]

NARRATIVE: CASE EVENT DATE: 2014
